FAERS Safety Report 21800341 (Version 1)
Quarter: 2022Q4

REPORT INFORMATION
  Report Type: Report from Study
  Country: US (occurrence: US)
  Receive Date: 20221230
  Receipt Date: 20221230
  Transmission Date: 20230113
  Serious: No
  Sender: FDA-Public Use
  Company Number: US-ABBVIE-4217146

PATIENT
  Sex: Male

DRUGS (2)
  1. HUMIRA [Suspect]
     Active Substance: ADALIMUMAB
     Indication: Psoriatic arthropathy
     Dosage: CITRATE FREE, FIRST ADMIN DATE: 22 JUL 2022
     Route: 058
  2. HUMIRA [Suspect]
     Active Substance: ADALIMUMAB
     Indication: Ankylosing spondylitis

REACTIONS (5)
  - Back pain [Unknown]
  - Abdominal pain upper [Unknown]
  - Rhinorrhoea [Recovering/Resolving]
  - Oropharyngeal pain [Recovering/Resolving]
  - Flatulence [Unknown]
